FAERS Safety Report 8486129-X (Version None)
Quarter: 2012Q3

REPORT INFORMATION
  Report Type: 
  Country: None (occurrence: None)
  Receive Date: 20120703
  Receipt Date: 20120625
  Transmission Date: 20120928
  Serious: Yes (Disabling, Other)
  Sender: FDA-Public Use
  Company Number: IE-BAXTER-2012BAX009625

PATIENT
  Sex: Male

DRUGS (2)
  1. SODIUM CHLORIDE 0.9% [Suspect]
     Indication: CYSTIC FIBROSIS
     Route: 042
     Dates: start: 20120624, end: 20120624
  2. PIPERACILLIN AND TAZOBACTAM [Suspect]
     Indication: CYSTIC FIBROSIS
     Route: 042
     Dates: start: 20120624, end: 20120624

REACTIONS (2)
  - MUSCULOSKELETAL PAIN [None]
  - ABASIA [None]
